FAERS Safety Report 4445045-0 (Version None)
Quarter: 2004Q3

REPORT INFORMATION
  Report Type: 
  Country: None (occurrence: None)
  Receive Date: 20040908
  Receipt Date: 20040908
  Transmission Date: 20050211
  Serious: No
  Sender: FDA-Public Use
  Company Number: None

PATIENT
  Sex: Male
  Weight: 87.0906 kg

DRUGS (6)
  1. PEGASYS [Suspect]
     Indication: HEPATITIS C VIRUS
     Dosage: 180MCG  SQ WEEKLY
     Dates: start: 20031005, end: 20040219
  2. RIBAVIRIN [Suspect]
     Dosage: 600 MG  PO BID
     Route: 048
     Dates: start: 20031005, end: 20040219
  3. METFORMIN HCL [Concomitant]
  4. PROCRIT [Concomitant]
  5. GEMFIBROZIL [Concomitant]
  6. HYDROXYZINE [Concomitant]

REACTIONS (5)
  - ANAEMIA [None]
  - CORNEAL ULCER [None]
  - DIABETES MELLITUS [None]
  - HYPERTRIGLYCERIDAEMIA [None]
  - NEUTROPENIA [None]
